FAERS Safety Report 16458973 (Version 1)
Quarter: 2019Q2

REPORT INFORMATION
  Report Type: Spontaneous
  Country: US (occurrence: US)
  Receive Date: 20190620
  Receipt Date: 20190620
  Transmission Date: 20190711
  Serious: No
  Sender: FDA-Public Use
  Company Number: US-THERAPEUTICSMD-2019TMD01078

PATIENT
  Age: 62 Year
  Sex: Female
  Weight: 59.86 kg

DRUGS (5)
  1. PREMARIN [Suspect]
     Active Substance: ESTROGENS, CONJUGATED
     Indication: LIBIDO DISORDER
     Dosage: UNK
     Route: 061
     Dates: start: 20190517
  2. VITAMIN B12 [Concomitant]
     Active Substance: CYANOCOBALAMIN
  3. XANAX [Concomitant]
     Active Substance: ALPRAZOLAM
     Indication: ANXIETY
     Dosage: 0.25 DOSAGE UNITS, AS NEEDED
  4. IMVEXXY [Suspect]
     Active Substance: ESTRADIOL
     Indication: LIBIDO DISORDER
     Dosage: 10 ?G, 1X/DAY BEFORE BED OR WHILE REMAINING UPRIGHT AND/OR ACTIVE
     Route: 067
     Dates: start: 20190517
  5. B3 [Concomitant]

REACTIONS (5)
  - Product dose omission [Recovered/Resolved]
  - Feeling jittery [Recovering/Resolving]
  - Off label use [Not Recovered/Not Resolved]
  - Product residue present [Recovered/Resolved]
  - Product administration error [Unknown]

NARRATIVE: CASE EVENT DATE: 20190517
